FAERS Safety Report 21892350 (Version 1)
Quarter: 2023Q1

REPORT INFORMATION
  Report Type: Report from Study
  Country: US (occurrence: US)
  Receive Date: 20230120
  Receipt Date: 20230120
  Transmission Date: 20230417
  Serious: Yes (Other)
  Sender: FDA-Public Use
  Company Number: US-JAZZ-2022-US-032441

PATIENT
  Sex: Female

DRUGS (31)
  1. XYREM [Suspect]
     Active Substance: SODIUM OXYBATE
     Indication: Narcolepsy
     Dosage: 3.75 GRAM, BID
     Dates: start: 2017
  2. XYREM [Suspect]
     Active Substance: SODIUM OXYBATE
     Indication: Cataplexy
  3. XYREM [Suspect]
     Active Substance: SODIUM OXYBATE
     Indication: Somnolence
  4. IODINE [Suspect]
     Active Substance: IODINE
     Indication: Product used for unknown indication
  5. PREGABALIN [Suspect]
     Active Substance: PREGABALIN
     Indication: Product used for unknown indication
     Dosage: UNK
     Dates: start: 20220712
  6. LEXAPRO [Concomitant]
     Active Substance: ESCITALOPRAM OXALATE
     Dosage: UNK
     Dates: start: 20131126
  7. ALPRAZOLAM [Concomitant]
     Active Substance: ALPRAZOLAM
     Dosage: UNK
     Dates: start: 20151020
  8. ERGOCALCIFEROL [Concomitant]
     Active Substance: ERGOCALCIFEROL
     Dosage: UNK
     Dates: start: 20151020
  9. LIOTHYRONINE SODIUM [Concomitant]
     Active Substance: LIOTHYRONINE SODIUM
     Dosage: UNK
     Dates: start: 20151020
  10. HYDROCORTISONE ACETATE [Concomitant]
     Active Substance: HYDROCORTISONE ACETATE
     Dosage: UNK
     Dates: start: 20151020
  11. NAPROXEN SODIUM [Concomitant]
     Active Substance: NAPROXEN SODIUM
     Dosage: UNK
     Dates: start: 20151020
  12. OMEPRAZOLE [Concomitant]
     Active Substance: OMEPRAZOLE
     Dosage: UNK
     Dates: start: 20151020
  13. PROGESTERONE [Concomitant]
     Active Substance: PROGESTERONE
     Dosage: UNK
     Dates: start: 20151020
  14. TRAMADOL HCL [Concomitant]
     Active Substance: TRAMADOL HYDROCHLORIDE
     Dosage: UNK
     Dates: start: 20151020
  15. TRAZODONE [Interacting]
     Active Substance: TRAZODONE HYDROCHLORIDE
     Dosage: UNK
     Dates: start: 20151020
  16. VALTREX [Concomitant]
     Active Substance: VALACYCLOVIR HYDROCHLORIDE
     Dosage: UNK
     Dates: start: 20151020
  17. ALCOHOL [Concomitant]
     Active Substance: ALCOHOL
     Dosage: UNK
     Dates: start: 20151020
  18. BILEMIN [Concomitant]
     Dosage: UNK
     Dates: start: 20160121
  19. EPA PLUS [Concomitant]
     Dosage: UNK
     Dates: start: 20160121
  20. INFLAVONOID INTENSIVE CARE [Concomitant]
     Dosage: UNK
     Dates: start: 20160121
  21. ACETYLCYSTEINE [Concomitant]
     Active Substance: ACETYLCYSTEINE
     Dosage: 0000
     Dates: start: 20160121
  22. PONARIS [FLUCONAZOLE] [Concomitant]
     Dosage: UNK
     Dates: start: 20160121
  23. XANAX [Concomitant]
     Active Substance: ALPRAZOLAM
     Dosage: UNK
  24. XANAX [Concomitant]
     Active Substance: ALPRAZOLAM
     Dosage: UNK
  25. XANAX [Concomitant]
     Active Substance: ALPRAZOLAM
     Dosage: UNK
  26. LUNESTA [Concomitant]
     Active Substance: ESZOPICLONE
     Dosage: UNK
     Dates: start: 20220418
  27. CLARITIN-D NOS [Concomitant]
     Active Substance: LORATADINE\PSEUDOEPHEDRINE SULFATE
  28. MITOCHONDRIAL NRG [Concomitant]
  29. VITAMINS [Concomitant]
     Active Substance: VITAMINS
  30. ZINC [Concomitant]
     Active Substance: ZINC
  31. ALBUTEROL [Concomitant]
     Active Substance: ALBUTEROL

REACTIONS (19)
  - Neuropathy peripheral [Unknown]
  - Neck pain [Unknown]
  - Fatigue [Unknown]
  - Hangover [Unknown]
  - Illness [Unknown]
  - Drug interaction [Unknown]
  - Weight increased [Not Recovered/Not Resolved]
  - Blood cholesterol increased [Unknown]
  - Drug hypersensitivity [Unknown]
  - Vitamin C decreased [Unknown]
  - Fibromyalgia [Unknown]
  - Hiatus hernia [Unknown]
  - Premenstrual dysphoric disorder [Unknown]
  - Pruritus [Unknown]
  - Nasopharyngitis [Unknown]
  - Asthma [Unknown]
  - Feeling abnormal [Unknown]
  - Expired product administered [Unknown]
  - Incorrect dose administered [Unknown]
